FAERS Safety Report 5159095-2 (Version None)
Quarter: 2006Q4

REPORT INFORMATION
  Report Type: 
  Country: None (occurrence: None)
  Receive Date: 20061128
  Receipt Date: 20010611
  Transmission Date: 20070319
  Serious: Yes (Death)
  Sender: FDA-Public Use
  Company Number: FR-BOEHRINGER INGELHEIM PHARMACEUTICALS, INC.-2001-FF-S0351

PATIENT
  Sex: Male
  Weight: 4 kg

DRUGS (13)
  1. VIRAMUNE [Suspect]
     Indication: HUMAN IMMUNODEFICIENCY VIRUS TRANSMISSION
     Route: 048
  2. VIDEX [Suspect]
     Indication: HUMAN IMMUNODEFICIENCY VIRUS TRANSMISSION
     Route: 015
  3. NORVIR [Suspect]
     Indication: HUMAN IMMUNODEFICIENCY VIRUS TRANSMISSION
     Route: 015
  4. SAQUINAVIR [Suspect]
     Indication: HUMAN IMMUNODEFICIENCY VIRUS TRANSMISSION
     Route: 015
  5. COLPOSEPTINE [Concomitant]
     Route: 015
  6. CLAMOXYL [Concomitant]
     Route: 015
  7. BACTRIM [Concomitant]
     Route: 015
  8. SPECIAFOLDINE [Concomitant]
     Route: 015
  9. RETROVIR [Concomitant]
     Route: 048
     Dates: start: 20010305, end: 20010404
  10. SALBUTAMOL [Concomitant]
     Route: 015
  11. CELESTENE [Concomitant]
     Route: 015
  12. IRON [Concomitant]
     Route: 015
  13. UVEDOSE [Concomitant]
     Route: 015

REACTIONS (7)
  - ANAEMIA [None]
  - DRUG EXPOSURE DURING PREGNANCY [None]
  - LACTIC ACIDOSIS [None]
  - LIPASE INCREASED [None]
  - NEUTROPENIA [None]
  - SUDDEN DEATH [None]
  - TREMOR [None]
